FAERS Safety Report 17461986 (Version 1)
Quarter: 2020Q1

REPORT INFORMATION
  Report Type: Spontaneous
  Country: FR (occurrence: FR)
  Receive Date: 20200226
  Receipt Date: 20200226
  Transmission Date: 20200409
  Serious: Yes (Death, Hospitalization)
  Sender: FDA-Public Use
  Company Number: FR-ROCHE-2550143

PATIENT
  Age: 83 Year
  Sex: Female
  Weight: 48 kg

DRUGS (1)
  1. XELODA [Suspect]
     Active Substance: CAPECITABINE
     Indication: CHEMOTHERAPY
     Route: 048
     Dates: start: 20191228, end: 20200110

REACTIONS (3)
  - Superinfection [Fatal]
  - Skin toxicity [Fatal]
  - Haematotoxicity [Fatal]

NARRATIVE: CASE EVENT DATE: 20200110
